FAERS Safety Report 5215340-6 (Version None)
Quarter: 2006Q4

REPORT INFORMATION
  Report Type: 
  Country: None (occurrence: None)
  Receive Date: 20061122
  Receipt Date: 20060713
  Transmission Date: 20070319
  Serious: Yes (Other)
  Sender: FDA-Public Use
  Company Number: 2006066399

PATIENT
  Sex: Female

DRUGS (1)
  1. LIPITOR [Suspect]
     Indication: ILL-DEFINED DISORDER
     Dosage: 40 MG

REACTIONS (5)
  - AMNESIA [None]
  - BACK PAIN [None]
  - MUSCLE SPASMS [None]
  - OEDEMA PERIPHERAL [None]
  - SLEEP DISORDER [None]
